FAERS Safety Report 25625144 (Version 1)
Quarter: 2025Q3

REPORT INFORMATION
  Report Type: Spontaneous
  Country: US (occurrence: US)
  Receive Date: 20250731
  Receipt Date: 20250731
  Transmission Date: 20251020
  Serious: No
  Sender: PRINSTON PHARMACEUTICAL
  Company Number: US-PRINSTON PHARMACEUTICAL INC.-2024PRN00380

PATIENT
  Sex: Female

DRUGS (2)
  1. CLONAZEPAM [Suspect]
     Active Substance: CLONAZEPAM
     Indication: Insomnia
     Dosage: 2 TABLETS (0.5 MG), 2X/DAY AT BEDTIME AND 2 TABLETS (0.5 MG) AT 5:00 TO 6:00 AM
     Route: 048
     Dates: start: 2024
  2. CLONAZEPAM [Suspect]
     Active Substance: CLONAZEPAM
     Indication: Anxiety

REACTIONS (4)
  - Rash macular [Not Recovered/Not Resolved]
  - Eczema [Not Recovered/Not Resolved]
  - Depression [Not Recovered/Not Resolved]
  - Product substitution issue [Unknown]

NARRATIVE: CASE EVENT DATE: 20240101
